FAERS Safety Report 25771138 (Version 2)
Quarter: 2025Q4

REPORT INFORMATION
  Report Type: Spontaneous
  Country: EU (occurrence: EU)
  Receive Date: 20250908
  Receipt Date: 20251229
  Transmission Date: 20260117
  Serious: Yes (Other)
  Sender: ROCHE
  Company Number: EU-ROCHE-10000377357

PATIENT
  Age: 50 Year
  Sex: Female

DRUGS (5)
  1. OCREVUS [Suspect]
     Active Substance: OCRELIZUMAB
     Indication: Multiple sclerosis
  2. OCREVUS [Suspect]
     Active Substance: OCRELIZUMAB
  3. OCREVUS [Suspect]
     Active Substance: OCRELIZUMAB
     Dates: start: 20251117
  4. GABAPENTIN [Concomitant]
     Active Substance: GABAPENTIN
     Dosage: 3 TIMES
  5. AMITRIPTYLINE HYDROCHLORIDE [Concomitant]
     Active Substance: AMITRIPTYLINE HYDROCHLORIDE

REACTIONS (1)
  - Blood thyroid stimulating hormone abnormal [Unknown]

NARRATIVE: CASE EVENT DATE: 20250813
